FAERS Safety Report 7249335-8 (Version None)
Quarter: 2011Q1

REPORT INFORMATION
  Report Type: 
  Country: None (occurrence: None)
  Receive Date: 20110128
  Receipt Date: 20101130
  Transmission Date: 20110831
  Serious: Yes (Hospitalization, Other)
  Sender: FDA-Public Use
  Company Number: US-BAYER-201032719NA

PATIENT
  Sex: Female
  Weight: 90.703 kg

DRUGS (21)
  1. XANAX [Concomitant]
  2. FAMOTIDINE [Concomitant]
     Dosage: 20 MG, BID
     Route: 048
     Dates: start: 20080916
  3. PHENTERMINE [Concomitant]
     Dosage: UNK
     Dates: start: 20080301, end: 20090801
  4. OCELLA [Suspect]
     Indication: MENSTRUAL CYCLE MANAGEMENT
  5. MULTI-VITAMIN [Concomitant]
     Dosage: UNK UNK, QD
     Route: 048
     Dates: start: 20060101, end: 20100101
  6. YASMIN [Suspect]
     Indication: MENSTRUAL CYCLE MANAGEMENT
  7. ZYRTEC [Concomitant]
  8. YAZ [Suspect]
     Indication: MENSTRUAL CYCLE MANAGEMENT
  9. IBUPROFEN [Concomitant]
     Dosage: UNK UNK, PRN
     Dates: start: 20000101, end: 20100101
  10. HYDROCODONE [Concomitant]
     Dosage: UNK UNK, PRN
     Route: 048
     Dates: start: 20080822, end: 20080916
  11. LEVAQUIN [Concomitant]
     Dosage: 500 MG, QD
     Route: 048
     Dates: start: 20080904
  12. OCELLA [Suspect]
     Indication: CONTRACEPTION
     Dosage: UNK UNK, QD
     Route: 048
     Dates: start: 20060101, end: 20091201
  13. YAZ [Suspect]
     Indication: CONTRACEPTION
     Dosage: UNK
     Dates: start: 20060101, end: 20091201
  14. ALLEGRA [Concomitant]
     Dosage: 180 MG, QD
     Route: 048
     Dates: start: 20080324, end: 20090801
  15. DIFLUCAN [Concomitant]
  16. ZITHROMAX [Concomitant]
     Dosage: UNK
     Dates: end: 20090801
  17. PHENAZOPYRIDINE HCL TAB [Concomitant]
     Dosage: 200 MG, TID
     Route: 048
     Dates: start: 20080904
  18. FASTIN [Concomitant]
     Dosage: UNK
     Dates: start: 20090429
  19. PROZAC [Concomitant]
  20. MACROBID [Concomitant]
  21. YASMIN [Suspect]
     Indication: CONTRACEPTION
     Dosage: UNK UNK, QD
     Route: 048
     Dates: start: 20060101, end: 20090801

REACTIONS (11)
  - GALLBLADDER CHOLESTEROLOSIS [None]
  - CHOLECYSTITIS ACUTE [None]
  - ABDOMINAL TENDERNESS [None]
  - CHOLECYSTITIS CHRONIC [None]
  - PANCREATITIS [None]
  - GASTRITIS [None]
  - NAUSEA [None]
  - ABDOMINAL PAIN UPPER [None]
  - DYSPEPSIA [None]
  - CHOLELITHIASIS [None]
  - PROCEDURAL PAIN [None]
